FAERS Safety Report 4418001-6 (Version None)
Quarter: 2004Q3

REPORT INFORMATION
  Report Type: 
  Country: None (occurrence: None)
  Receive Date: 20040804
  Receipt Date: 20040727
  Transmission Date: 20050211
  Serious: Yes (Hospitalization)
  Sender: FDA-Public Use
  Company Number: 2004-118953-NL

PATIENT

DRUGS (1)
  1. MIRTAZAPINE [Suspect]
     Dosage: DF
     Dates: start: 20040201, end: 20040601

REACTIONS (3)
  - OEDEMA PERIPHERAL [None]
  - PULMONARY OEDEMA [None]
  - WEIGHT INCREASED [None]
